FAERS Safety Report 9565249 (Version 1)
Quarter: 2013Q3

REPORT INFORMATION
  Report Type: Report from Study
  Country: MX (occurrence: MX)
  Receive Date: 20130930
  Receipt Date: 20130930
  Transmission Date: 20140515
  Serious: Yes (Other)
  Sender: FDA-Public Use
  Company Number: PHHY2013MX108837

PATIENT
  Age: 73 Year
  Sex: Female

DRUGS (5)
  1. CO-DIOVAN [Suspect]
     Indication: HYPERTENSION
     Dosage: 1 DF (160/12.5 MG), DAILY
     Route: 048
  2. SELOKEN [Concomitant]
     Indication: HYPERTENSION
     Dosage: 1 UKN, DAILY
     Dates: start: 2008
  3. MINIPRESS [Concomitant]
     Indication: HYPERTENSION
     Dosage: 1 UKN, DAILY
     Dates: start: 2008
  4. JANUVIA [Concomitant]
     Indication: DIABETES MELLITUS
     Dosage: 3 UKN, DAILY
     Dates: start: 2006
  5. ZACTOS [Concomitant]
     Indication: DIABETES MELLITUS
     Dosage: 2 UKN, DAILY
     Dates: start: 2011

REACTIONS (10)
  - Cataract [Recovering/Resolving]
  - Eye disorder [Unknown]
  - Vision blurred [Not Recovered/Not Resolved]
  - Visual acuity reduced [Recovered/Resolved]
  - Stress [Recovered/Resolved]
  - Nervousness [Recovered/Resolved]
  - Disturbance in attention [Recovered/Resolved]
  - Memory impairment [Unknown]
  - Blood pressure decreased [Recovered/Resolved]
  - Dizziness [Recovered/Resolved]
